FAERS Safety Report 7318566-0 (Version None)
Quarter: 2011Q1

REPORT INFORMATION
  Report Type: 
  Country: None (occurrence: None)
  Receive Date: 20110218
  Receipt Date: 20110218
  Transmission Date: 20110831
  Serious: Yes (Life-Threatening)
  Sender: FDA-Public Use
  Company Number: None

PATIENT
  Age: 49 Year
  Sex: Female
  Weight: 90.7194 kg

DRUGS (4)
  1. FLUIDS ABD [Concomitant]
  2. STEROIDS [Concomitant]
  3. NIFEDIPINE [Suspect]
     Indication: HEART RATE INCREASED
     Dosage: 1 DAILY
     Dates: start: 20110216, end: 20110217
  4. NIFEDIPINE [Suspect]
     Indication: URTICARIA
     Dosage: 1 DAILY
     Dates: start: 20110216, end: 20110217

REACTIONS (2)
  - HEART RATE INCREASED [None]
  - URTICARIA [None]
